FAERS Safety Report 13526381 (Version 1)
Quarter: 2017Q2

REPORT INFORMATION
  Report Type: Spontaneous
  Country: US (occurrence: US)
  Receive Date: 20170508
  Receipt Date: 20170508
  Transmission Date: 20170830
  Serious: Yes (Death)
  Sender: FDA-Public Use
  Company Number: None

PATIENT
  Age: 77 Year
  Sex: Female
  Weight: 94.5 kg

DRUGS (29)
  1. LANTUS SOLOSTAR [Concomitant]
     Active Substance: INSULIN GLARGINE
  2. D MANNOSE [Concomitant]
  3. TURMERIC [Concomitant]
     Active Substance: HERBALS\TURMERIC
  4. VITAMIN E [Concomitant]
     Active Substance: .ALPHA.-TOCOPHEROL
  5. N ACETYL GLUCOSAMINE [Concomitant]
  6. MAGNESUM THREONATE [Concomitant]
  7. N ACETYL CYSTEINE [Concomitant]
     Active Substance: ACETYLCYSTEINE
  8. LEVAQUIN [Suspect]
     Active Substance: LEVOFLOXACIN
     Indication: INFECTION PROPHYLAXIS
     Dates: start: 20161229, end: 20161229
  9. LEVAQUIN [Suspect]
     Active Substance: LEVOFLOXACIN
     Indication: CYSTOSCOPY
     Dates: start: 20161229, end: 20161229
  10. VITAMIN C [Concomitant]
     Active Substance: ASCORBIC ACID
  11. OMEGA ESSENTIALS ORAL LIQUID [Concomitant]
  12. SLIPPERY ELM BARK [Concomitant]
  13. OLIVE LEAF EXTRACT [Concomitant]
  14. NOVOLOG [Concomitant]
     Active Substance: INSULIN ASPART
  15. PROAIR HFA [Concomitant]
     Active Substance: ALBUTEROL SULFATE
  16. ACETYL L CARNITINE [Concomitant]
  17. ALOE VERA WATER [Concomitant]
  18. VITAMIN B COMPLEX [Concomitant]
     Active Substance: CYANOCOBALAMIN\DEXPANTHENOL\NIACINAMIDE\PYRIDOXINE HYDROCHLORIDE\RIBOFLAVIN 5^-PHOSPHATE SODIUM\THIAMINE HYDROCHLORIDE\VITAMIN B COMPLEX
  19. GABAPENTIN. [Concomitant]
     Active Substance: GABAPENTIN
  20. HYOSCYAMINE. [Concomitant]
     Active Substance: HYOSCYAMINE
  21. CRANBERRY. [Concomitant]
     Active Substance: CRANBERRY
  22. PROBIOTIC ORAL PACKET [Concomitant]
  23. UBIQUINOL [Concomitant]
     Active Substance: UBIQUINOL
  24. CARVEDILOL. [Concomitant]
     Active Substance: CARVEDILOL
  25. POTASSIUM [Concomitant]
     Active Substance: POTASSIUM
  26. ALPHA LIPOIC ACID [Concomitant]
     Active Substance: .ALPHA.-LIPOIC ACID
  27. IODORAL [Concomitant]
     Active Substance: IODINE\POTASSIUM IODIDE
  28. ZINC. [Concomitant]
     Active Substance: ZINC
  29. VITAMIN D [Concomitant]
     Active Substance: CHOLECALCIFEROL

REACTIONS (5)
  - Constipation [None]
  - Asthenia [None]
  - Decreased appetite [None]
  - Mobility decreased [None]
  - Contraindicated product administered [None]

NARRATIVE: CASE EVENT DATE: 20170307
